FAERS Safety Report 9116788 (Version 2)
Quarter: 2020Q3

REPORT INFORMATION
  Report Type: Report from Study
  Country: US (occurrence: US)
  Receive Date: 20130225
  Receipt Date: 20130626
  Transmission Date: 20201104
  Serious: Yes (Hospitalization)
  Sender: FDA-Public Use
  Company Number: US-JNJFOC-20130102506

PATIENT
  Age: 77 Year
  Sex: Female
  Weight: 75.3 kg

DRUGS (12)
  1. ASPIRIN. [Suspect]
     Active Substance: ASPIRIN
     Indication: CARDIOVASCULAR DISORDER
     Route: 048
     Dates: start: 201203
  2. VENTOLIN [Concomitant]
     Active Substance: ALBUTEROL SULFATE
     Indication: EMPHYSEMA
     Route: 048
     Dates: start: 201203
  3. ALEVE [Suspect]
     Active Substance: NAPROXEN SODIUM
     Indication: ARTHRITIS
     Route: 065
  4. VITAMIN D NOS [Concomitant]
     Active Substance: VITAMIN D NOS
     Indication: MEDICAL DIET
     Route: 048
     Dates: start: 20101129
  5. LISINOPRIL. [Concomitant]
     Active Substance: LISINOPRIL
     Indication: HYPERTENSION
     Route: 048
     Dates: start: 2010
  6. IBRUTINIB [Suspect]
     Active Substance: IBRUTINIB
     Indication: CHRONIC LYMPHOCYTIC LEUKAEMIA
     Route: 048
     Dates: start: 20121223
  7. CENTRUM SILVER MULTIVITAMINS [Concomitant]
     Indication: MEDICAL DIET
     Route: 048
     Dates: start: 20101129
  8. OMEGA?3 FATTY ACIDS [Concomitant]
     Active Substance: OMEGA-3 FATTY ACIDS
     Indication: MEDICAL DIET
     Route: 048
     Dates: start: 20110322
  9. IBRUTINIB [Suspect]
     Active Substance: IBRUTINIB
     Indication: CHRONIC LYMPHOCYTIC LEUKAEMIA
     Dosage: CYCLE 3, 70 DOSES RECEIVED
     Route: 048
     Dates: start: 20121011, end: 20121219
  10. IBUPROFEN. [Suspect]
     Active Substance: IBUPROFEN
     Indication: ARTHRALGIA
     Route: 048
     Dates: start: 2010
  11. FOLIC ACID. [Concomitant]
     Active Substance: FOLIC ACID
     Indication: MEDICAL DIET
     Route: 048
     Dates: start: 20110215
  12. CRESTOR [Concomitant]
     Active Substance: ROSUVASTATIN CALCIUM
     Indication: HYPERCHOLESTEROLAEMIA
     Route: 048
     Dates: start: 2010

REACTIONS (6)
  - Oesophagitis [None]
  - Oesophageal ulcer [Recovered/Resolved]
  - Haemoglobin decreased [None]
  - Hiatus hernia [None]
  - Haematemesis [None]
  - Gastritis [None]

NARRATIVE: CASE EVENT DATE: 20121219
